FAERS Safety Report 23618684 (Version 1)
Quarter: 2024Q1

REPORT INFORMATION
  Report Type: Spontaneous
  Country: FR (occurrence: FR)
  Receive Date: 20240311
  Receipt Date: 20240311
  Transmission Date: 20240409
  Serious: Yes (Death)
  Sender: FDA-Public Use
  Company Number: None

PATIENT
  Age: 90 Year
  Sex: Female
  Weight: 48.8 kg

DRUGS (3)
  1. OXYCODONE HYDROCHLORIDE [Suspect]
     Active Substance: OXYCODONE HYDROCHLORIDE
     Indication: Pain
     Dosage: 12 MILLIGRAM, DAILY (0.5 MG/H)
     Route: 058
     Dates: start: 20240215, end: 20240219
  2. ACUPAN [Suspect]
     Active Substance: NEFOPAM HYDROCHLORIDE
     Indication: Pain
     Dosage: 80 MILLIGRAM, DAILY (4 AMP/J)
     Route: 042
     Dates: start: 20240215, end: 20240219
  3. CEFTAZIDIME [Suspect]
     Active Substance: CEFTAZIDIME
     Indication: Pneumonia pseudomonal
     Dosage: 6 GRAM, DAILY (2 G X 3/J)
     Route: 042
     Dates: start: 20240202, end: 20240221

REACTIONS (1)
  - Altered state of consciousness [Fatal]

NARRATIVE: CASE EVENT DATE: 20240219
